FAERS Safety Report 8482313-X (Version None)
Quarter: 2012Q3

REPORT INFORMATION
  Report Type: 
  Country: None (occurrence: None)
  Receive Date: 20120702
  Receipt Date: 20120622
  Transmission Date: 20120928
  Serious: Yes (Life-Threatening)
  Sender: FDA-Public Use
  Company Number: JP-ROCHE-680689

PATIENT
  Sex: Female
  Weight: 65 kg

DRUGS (27)
  1. MOBIC [Concomitant]
     Route: 048
  2. ACTEMRA [Suspect]
     Indication: RHEUMATOID ARTHRITIS
     Route: 041
     Dates: start: 20080715, end: 20080715
  3. ACTEMRA [Suspect]
     Route: 041
     Dates: start: 20080812, end: 20080812
  4. ACTEMRA [Suspect]
     Route: 041
     Dates: start: 20081112, end: 20081112
  5. ACTEMRA [Suspect]
     Route: 041
     Dates: start: 20090605, end: 20090605
  6. CEVIMELINE HYDROCHLORIDE [Concomitant]
     Dosage: DRUG NAME: SALIGREN(CEVIMELINE HYDROCHLORIDE HYDRATE)
     Route: 048
  7. ACTEMRA [Suspect]
     Route: 041
     Dates: start: 20080909, end: 20080909
  8. ACTEMRA [Suspect]
     Route: 041
     Dates: start: 20090107, end: 20090107
  9. ACTEMRA [Suspect]
     Route: 041
     Dates: start: 20090304, end: 20090304
  10. PREDNISOLONE [Concomitant]
     Dosage: DOSE FORM: ORAL FORMULATION (NOT OTHERWISE SPECIFIED)
     Route: 048
     Dates: start: 20080920, end: 20081209
  11. ACTEMRA [Suspect]
     Route: 041
     Dates: start: 20090204, end: 20090204
  12. ACTEMRA [Suspect]
     Route: 041
     Dates: start: 20091209, end: 20091209
  13. ACTEMRA [Suspect]
     Route: 041
     Dates: start: 20100105, end: 20100105
  14. PREDNISOLONE [Concomitant]
     Dosage: DOSE FORM: ORAL FORMULATION (NOT OTHERWISE SPECIFIED)
     Route: 048
  15. MUCOSTA [Concomitant]
     Route: 048
  16. MAGLAX [Concomitant]
     Dosage: DOSE FORM: ORAL FORMULATION (NOT OTHERWISE SPECIFIED)
     Route: 048
  17. ACTEMRA [Suspect]
     Route: 041
     Dates: start: 20090409, end: 20090409
  18. ACTEMRA [Suspect]
     Route: 041
     Dates: start: 20090508, end: 20090508
  19. ACTEMRA [Suspect]
     Route: 041
     Dates: start: 20090807, end: 20090807
  20. ACTEMRA [Suspect]
     Route: 041
     Dates: start: 20091009, end: 20091009
  21. CALFINA [Concomitant]
     Route: 048
  22. ACTEMRA [Suspect]
     Route: 041
     Dates: start: 20081010, end: 20081010
  23. ACTEMRA [Suspect]
     Route: 041
     Dates: start: 20090703, end: 20090703
  24. ACTEMRA [Suspect]
     Route: 041
     Dates: start: 20090911, end: 20090911
  25. ACTEMRA [Suspect]
     Route: 041
     Dates: start: 20091112, end: 20091112
  26. PREDNISOLONE [Concomitant]
     Dosage: DOSE FORM: ORAL FORMULATION (NOT OTHERWISE SPECIFIED)
     Route: 048
  27. ACTEMRA [Suspect]
     Route: 041
     Dates: start: 20081210, end: 20081210

REACTIONS (1)
  - OESOPHAGEAL CARCINOMA [None]
